FAERS Safety Report 8276334-X (Version None)
Quarter: 2012Q2

REPORT INFORMATION
  Report Type: 
  Country: None (occurrence: None)
  Receive Date: 20120412
  Receipt Date: 20120409
  Transmission Date: 20120825
  Serious: Yes (Death)
  Sender: FDA-Public Use
  Company Number: PHHY2012BO014371

PATIENT
  Sex: Female

DRUGS (2)
  1. GLEEVEC [Suspect]
     Dosage: 300 MG, DAILY
     Dates: start: 20120101
  2. GLEEVEC [Suspect]
     Indication: CHRONIC MYELOID LEUKAEMIA
     Dosage: 400 MG, DAILY

REACTIONS (7)
  - NAUSEA [None]
  - MUSCLE SPASMS [None]
  - HEADACHE [None]
  - ABDOMINAL PAIN [None]
  - MYALGIA [None]
  - ARTHRALGIA [None]
  - DEATH [None]
